FAERS Safety Report 9745584 (Version 3)
Quarter: 2014Q2

REPORT INFORMATION
  Report Type: Spontaneous
  Country: US (occurrence: US)
  Receive Date: 20131211
  Receipt Date: 20140520
  Transmission Date: 20141212
  Serious: Yes (Hospitalization, Other)
  Sender: FDA-Public Use
  Company Number: US-BAYER-2013-147958

PATIENT
  Age: 28 Year
  Sex: Female
  Weight: 47.17 kg

DRUGS (5)
  1. MIRENA [Suspect]
     Dosage: 20 MCG/24HR, CONT
     Route: 015
     Dates: start: 20110201, end: 20130508
  2. METHADONE [Concomitant]
  3. ADDERALL [Concomitant]
     Indication: ATTENTION DEFICIT/HYPERACTIVITY DISORDER
     Dosage: UNK
     Dates: start: 2009
  4. XANAX [Concomitant]
     Indication: ANXIETY
     Dosage: UNK
     Dates: start: 2012
  5. LORTAB [Concomitant]
     Indication: PAIN

REACTIONS (8)
  - Uterine perforation [None]
  - Dysmenorrhoea [None]
  - Device difficult to use [None]
  - Injury [None]
  - Emotional distress [None]
  - Pain [None]
  - Device breakage [None]
  - Device issue [None]
